FAERS Safety Report 6961159-5 (Version None)
Quarter: 2010Q3

REPORT INFORMATION
  Report Type: 
  Country: None (occurrence: None)
  Receive Date: 20100901
  Receipt Date: 20100829
  Transmission Date: 20110219
  Serious: Yes (Death, Life-Threatening, Hospitalization, Disabling, Other)
  Sender: FDA-Public Use
  Company Number: US-BRISTOL-MYERS SQUIBB COMPANY-15237530

PATIENT
  Age: 65 Year
  Sex: Male

DRUGS (11)
  1. WARFARIN SODIUM [Suspect]
     Indication: THROMBOSIS PROPHYLAXIS
     Dosage: 1,2,5MG;25MAR-24AUG09 21WK5D;27AUG-24SEP09 4WK1D;28SEP-6FB2010 18WK6D;13FB-16JUN2010 17WK5D
     Route: 048
     Dates: start: 20090325, end: 20100616
  2. WARFARIN SODIUM [Suspect]
     Indication: CEREBROVASCULAR ACCIDENT PROPHYLAXIS
     Dosage: 1,2,5MG;25MAR-24AUG09 21WK5D;27AUG-24SEP09 4WK1D;28SEP-6FB2010 18WK6D;13FB-16JUN2010 17WK5D
     Route: 048
     Dates: start: 20090325, end: 20100616
  3. COUMADIN [Suspect]
     Indication: ATRIAL FIBRILLATION
     Route: 048
     Dates: start: 20100617
  4. RIVAROXABAN [Suspect]
     Indication: CEREBROVASCULAR ACCIDENT PROPHYLAXIS
     Dosage: 1,2,5MG;25MAR-24AUG09 21WK5D;27AUG-24SEP09 4WK1D;28SEP-6FB2010 18WK6D;13FB-16JUN2010 17WK5D
     Route: 048
     Dates: start: 20090325, end: 20100616
  5. RIVAROXABAN [Suspect]
     Indication: THROMBOSIS PROPHYLAXIS
     Dosage: 1,2,5MG;25MAR-24AUG09 21WK5D;27AUG-24SEP09 4WK1D;28SEP-6FB2010 18WK6D;13FB-16JUN2010 17WK5D
     Route: 048
     Dates: start: 20090325, end: 20100616
  6. DIGOXIN [Suspect]
     Indication: CARDIAC FAILURE CONGESTIVE
     Route: 048
     Dates: start: 20060101
  7. LEVOTHYROXINE [Concomitant]
     Route: 048
     Dates: start: 20060101
  8. CARVEDILOL [Concomitant]
     Indication: HYPERTENSION
     Route: 048
     Dates: start: 20090408
  9. CARVEDILOL [Concomitant]
     Indication: CARDIAC FAILURE
     Route: 048
     Dates: start: 20090408
  10. GLYBURIDE [Concomitant]
  11. RANITIDINE [Concomitant]

REACTIONS (4)
  - CARDIAC FAILURE CONGESTIVE [None]
  - CARDIOGENIC SHOCK [None]
  - DEATH [None]
  - HYPOKALAEMIA [None]
